FAERS Safety Report 8172568-3 (Version None)
Quarter: 2012Q1

REPORT INFORMATION
  Report Type: 
  Country: None (occurrence: None)
  Receive Date: 20120229
  Receipt Date: 20120223
  Transmission Date: 20120608
  Serious: No
  Sender: FDA-Public Use
  Company Number: US-PFIZER INC-2012010479

PATIENT
  Sex: Male

DRUGS (1)
  1. SUTENT [Suspect]
     Indication: GASTROINTESTINAL STROMAL TUMOUR
     Dosage: 37.5 MG, DAILY 2X/DAY, CYCLE 28 DAYS EVERY 42 DAYS,
     Dates: start: 20111222

REACTIONS (2)
  - PLATELET COUNT DECREASED [None]
  - FATIGUE [None]
